FAERS Safety Report 6889822-5 (Version None)
Quarter: 2010Q3

REPORT INFORMATION
  Report Type: 
  Country: None (occurrence: None)
  Receive Date: 20100730
  Receipt Date: 20080516
  Transmission Date: 20110219
  Serious: Yes (Other)
  Sender: FDA-Public Use
  Company Number: US-PFIZER INC-2008016985

PATIENT
  Sex: Female
  Weight: 104.3 kg

DRUGS (7)
  1. LIPITOR [Suspect]
     Route: 048
  2. DAYPRO [Concomitant]
     Dosage: 2 IN AM, 1 IN PM
  3. VITAMIN E [Concomitant]
     Dosage: 400 MG
  4. ASCORBIC ACID [Concomitant]
     Dosage: 500 MG
  5. VITAMINS [Concomitant]
  6. BETACAROTENE [Concomitant]
     Dosage: 25,000 MG
  7. CALCIUM [Concomitant]
     Dosage: DAILY

REACTIONS (5)
  - BLOOD CHOLESTEROL INCREASED [None]
  - LOW DENSITY LIPOPROTEIN INCREASED [None]
  - MUSCULOSKELETAL STIFFNESS [None]
  - NERVE COMPRESSION [None]
  - SCIATICA [None]
